FAERS Safety Report 25559762 (Version 1)
Quarter: 2025Q3

REPORT INFORMATION
  Report Type: Spontaneous
  Country: US (occurrence: US)
  Receive Date: 20250715
  Receipt Date: 20250715
  Transmission Date: 20251021
  Serious: No
  Sender: NOVO NORDISK
  Company Number: US-NOVOPROD-1420293

PATIENT
  Age: 70 Year

DRUGS (1)
  1. OZEMPIC [Suspect]
     Active Substance: SEMAGLUTIDE
     Indication: Product used for unknown indication
     Dosage: DOSE REPORTED/FREQUENCY: 1 MG/WEEKLY; STATUS: ONGOING

REACTIONS (2)
  - Malaise [Not Recovered/Not Resolved]
  - Illness [Not Recovered/Not Resolved]
